FAERS Safety Report 23844801 (Version 1)
Quarter: 2024Q2

REPORT INFORMATION
  Report Type: Spontaneous
  Country: US (occurrence: US)
  Receive Date: 20240511
  Receipt Date: 20240511
  Transmission Date: 20240716
  Serious: No
  Sender: FDA-Public Use
  Company Number: US-CIPLA LTD.-2024US03674

PATIENT

DRUGS (2)
  1. ALBUTEROL [Suspect]
     Active Substance: ALBUTEROL
     Indication: Wheezing
     Dosage: UNK
     Route: 065
  2. ALBUTEROL [Suspect]
     Active Substance: ALBUTEROL
     Dosage: 2 PUFFS, EVERY 6 HOURS AS NEEDED, PRN
     Dates: start: 20240208

REACTIONS (3)
  - Wheezing [Unknown]
  - Dyspnoea [Unknown]
  - Device delivery system issue [Unknown]

NARRATIVE: CASE EVENT DATE: 20240405
